FAERS Safety Report 5359992-9 (Version None)
Quarter: 2007Q2

REPORT INFORMATION
  Report Type: 
  Country: None (occurrence: None)
  Receive Date: 20070618
  Receipt Date: 20070607
  Transmission Date: 20071010
  Serious: Yes (Hospitalization)
  Sender: FDA-Public Use
  Company Number: HQWYE626108DEC06

PATIENT
  Sex: Male
  Weight: 67.1 kg

DRUGS (9)
  1. SIROLIMUS [Suspect]
     Indication: PROPHYLAXIS AGAINST TRANSPLANT REJECTION
     Route: 048
     Dates: start: 20060323
  2. HYTRIN [Concomitant]
     Indication: HYPERTENSION
     Dosage: DOSE NOT PROVIDED ON ADMISSION
     Route: 065
     Dates: start: 20050721, end: 20061206
  3. HYTRIN [Concomitant]
     Route: 048
     Dates: start: 20061207
  4. INDERAL [Concomitant]
     Indication: HYPERTENSION
     Dosage: DOSE NOT PROVIDED ON ADMISSION
     Route: 065
     Dates: start: 20050721, end: 20061206
  5. INDERAL [Concomitant]
     Route: 048
     Dates: start: 20061207
  6. ACETYLSALICYLIC ACID SRT [Concomitant]
     Dosage: DOSE NOT PROVIDED ON ADMISSION
     Route: 065
     Dates: start: 20050721, end: 20061206
  7. ACETYLSALICYLIC ACID SRT [Concomitant]
     Dosage: 81 MG MONDAY, WEDNESDAY, FRIDAY
     Route: 048
     Dates: start: 20061207
  8. ASCORBIC ACID/ERGOCALCIFEROL/FOLIC ACID/NICOTINAMIDE/PANTHENOL/RETINOL [Concomitant]
     Dosage: DOSE NOT PROVIDED ON ADMISSION
     Route: 065
     Dates: start: 20050721, end: 20061206
  9. ASCORBIC ACID/ERGOCALCIFEROL/FOLIC ACID/NICOTINAMIDE/PANTHENOL/RETINOL [Concomitant]
     Dosage: ^1 DAILY^
     Route: 048
     Dates: start: 20061207

REACTIONS (1)
  - GASTROENTERITIS [None]
